FAERS Safety Report 6187812-1 (Version None)
Quarter: 2009Q2

REPORT INFORMATION
  Report Type: 
  Country: None (occurrence: None)
  Receive Date: 20090513
  Receipt Date: 20090505
  Transmission Date: 20091009
  Serious: Yes (Other)
  Sender: FDA-Public Use
  Company Number: US-ELI_LILLY_AND_COMPANY-US200905000955

PATIENT
  Sex: Male

DRUGS (3)
  1. BYETTA [Suspect]
     Indication: DIABETES MELLITUS
     Dosage: 10 UG, UNKNOWN
     Route: 058
     Dates: start: 20080101
  2. GLYBURIDE [Concomitant]
     Dosage: UNK, UNKNOWN
  3. GLIPIZIDE [Concomitant]
     Dosage: UNK, EACH EVENING
     Route: 048

REACTIONS (5)
  - ACCIDENT [None]
  - BLOOD GLUCOSE INCREASED [None]
  - SPINAL COLUMN STENOSIS [None]
  - SPINAL OPERATION [None]
  - WEIGHT DECREASED [None]
